FAERS Safety Report 16958131 (Version 11)
Quarter: 2020Q2

REPORT INFORMATION
  Report Type: Spontaneous
  Country: HU (occurrence: HU)
  Receive Date: 20191024
  Receipt Date: 20200521
  Transmission Date: 20200713
  Serious: Yes (Other)
  Sender: FDA-Public Use
  Company Number: NVSC2019HU014369

PATIENT
  Age: 54 Year
  Sex: Female
  Weight: 65 kg

DRUGS (22)
  1. COSENTYX [Suspect]
     Active Substance: SECUKINUMAB
     Indication: PSORIATIC ARTHROPATHY
     Dosage: 150 MG, QW
     Route: 058
  2. ADALIMUMAB [Suspect]
     Active Substance: ADALIMUMAB
     Indication: ANKYLOSING SPONDYLITIS
  3. INFLIXIMAB [Suspect]
     Active Substance: INFLIXIMAB
     Indication: PSORIATIC ARTHROPATHY
     Dosage: UNK
     Route: 065
  4. CALCISEDRON D TRIO [Concomitant]
     Indication: OSTEOPOROSIS
     Dosage: 1 DF, QW (WEEKLY)
     Route: 065
  5. ADALIMUMAB [Suspect]
     Active Substance: ADALIMUMAB
     Indication: PSORIATIC ARTHROPATHY
     Dosage: UNK
     Route: 065
  6. COSENTYX [Suspect]
     Active Substance: SECUKINUMAB
     Indication: ANKYLOSING SPONDYLITIS
     Dosage: UNK UNK, QMO
     Route: 058
  7. COSENTYX [Suspect]
     Active Substance: SECUKINUMAB
     Dosage: 150 MG, MONTHLY (QMO)
     Route: 058
     Dates: start: 201709, end: 201803
  8. ETANERCEPT [Suspect]
     Active Substance: ETANERCEPT
     Indication: PSORIATIC ARTHROPATHY
     Dosage: UNK
     Route: 065
  9. GOLIMUMAB [Suspect]
     Active Substance: GOLIMUMAB
     Indication: ANKYLOSING SPONDYLITIS
     Dosage: UNK
     Route: 065
  10. GOLIMUMAB [Suspect]
     Active Substance: GOLIMUMAB
     Indication: PSORIATIC ARTHROPATHY
  11. CALCISEDRON D TRIO [Concomitant]
     Dosage: 2 DF, 1X/DAY
     Route: 065
  12. COSENTYX [Suspect]
     Active Substance: SECUKINUMAB
     Dosage: 150 MG, QMO
     Route: 058
  13. SECUKINUMAB. [Suspect]
     Active Substance: SECUKINUMAB
     Indication: ANKYLOSING SPONDYLITIS
     Dosage: 150 MG, QMO
     Route: 058
     Dates: start: 201709, end: 201803
  14. TRIAMCINOLONE [Suspect]
     Active Substance: TRIAMCINOLONE
     Indication: PRODUCT USED FOR UNKNOWN INDICATION
     Dosage: UNK
     Route: 031
  15. COSENTYX [Suspect]
     Active Substance: SECUKINUMAB
     Dosage: 150 MG, QW
     Route: 058
  16. RANIBIZUMAB. [Suspect]
     Active Substance: RANIBIZUMAB
     Indication: ANKYLOSING SPONDYLITIS
  17. SECUKINUMAB. [Suspect]
     Active Substance: SECUKINUMAB
     Dosage: 1 OT, QMO
     Route: 058
  18. RANIBIZUMAB. [Suspect]
     Active Substance: RANIBIZUMAB
     Indication: PSORIATIC ARTHROPATHY
     Dosage: UNK
     Route: 065
  19. SECUKINUMAB. [Suspect]
     Active Substance: SECUKINUMAB
     Indication: PSORIATIC ARTHROPATHY
     Dosage: 1 OT, QMO
     Route: 058
  20. SECUKINUMAB. [Suspect]
     Active Substance: SECUKINUMAB
     Dosage: 150 MG, QW (WEEKLY)
     Route: 058
  21. INFLIXIMAB [Suspect]
     Active Substance: INFLIXIMAB
     Indication: ANKYLOSING SPONDYLITIS
  22. ETANERCEPT [Suspect]
     Active Substance: ETANERCEPT
     Indication: ANKYLOSING SPONDYLITIS

REACTIONS (5)
  - Disease recurrence [Unknown]
  - Drug ineffective [Recovered/Resolved]
  - Uveitis [Unknown]
  - Psoriatic arthropathy [Unknown]
  - Iridocyclitis [Unknown]

NARRATIVE: CASE EVENT DATE: 201803
